FAERS Safety Report 5786406-7 (Version None)
Quarter: 2008Q2

REPORT INFORMATION
  Report Type: 
  Country: None (occurrence: None)
  Receive Date: 20080624
  Receipt Date: 20070626
  Transmission Date: 20081010
  Serious: No
  Sender: FDA-Public Use
  Company Number: US-ASTRAZENECA-2007UW15228

PATIENT
  Age: 17 Year
  Sex: Female

DRUGS (1)
  1. PULMICORT-100 [Suspect]
     Route: 055

REACTIONS (3)
  - ASTHMA [None]
  - PULMONARY FUNCTION TEST DECREASED [None]
  - WHEEZING [None]
